FAERS Safety Report 19812113 (Version 1)
Quarter: 2021Q3

REPORT INFORMATION
  Report Type: Spontaneous
  Country: NL (occurrence: NL)
  Receive Date: 20210910
  Receipt Date: 20210910
  Transmission Date: 20211014
  Serious: Yes (Congenital Anomaly, Other)
  Sender: FDA-Public Use
  Company Number: NL-ABBVIE-21K-114-4048847-00

PATIENT
  Sex: Male

DRUGS (1)
  1. DEPAKINE CHRONO [Suspect]
     Active Substance: VALPROATE SODIUM
     Indication: MATERNAL EXPOSURE TIMING UNSPECIFIED
     Route: 064

REACTIONS (5)
  - Speech disorder developmental [Unknown]
  - Foetal exposure during pregnancy [Unknown]
  - Fine motor skill dysfunction [Unknown]
  - Premature baby [Unknown]
  - Intelligence test abnormal [Unknown]

NARRATIVE: CASE EVENT DATE: 2010
